FAERS Safety Report 5368954-7 (Version None)
Quarter: 2007Q2

REPORT INFORMATION
  Report Type: 
  Country: None (occurrence: None)
  Receive Date: 20070625
  Receipt Date: 20061214
  Transmission Date: 20071010
  Serious: No
  Sender: FDA-Public Use
  Company Number: US-ASTRAZENECA-2006UW27990

PATIENT
  Age: 59 Year
  Sex: Female
  Weight: 90.9 kg

DRUGS (9)
  1. CRESTOR [Suspect]
     Indication: BLOOD CHOLESTEROL
     Route: 048
     Dates: start: 20050101, end: 20060101
  2. BYETTA [Suspect]
     Indication: DIABETES MELLITUS NON-INSULIN-DEPENDENT
     Route: 058
     Dates: start: 20060801, end: 20060901
  3. BYETTA [Suspect]
     Route: 058
     Dates: start: 20060901
  4. ACTOS [Concomitant]
     Dates: start: 20040101
  5. AVALIDE [Concomitant]
  6. TOPROL-XL [Concomitant]
     Route: 048
     Dates: start: 19890101
  7. MOBIC [Concomitant]
     Dates: start: 20020101
  8. CLONIDINE [Concomitant]
     Dates: start: 20020101
  9. PREMPRO [Concomitant]
     Dates: start: 20050101

REACTIONS (7)
  - CHILLS [None]
  - FEELING COLD [None]
  - MUSCULAR WEAKNESS [None]
  - MYALGIA [None]
  - NAUSEA [None]
  - TREMOR [None]
  - WEIGHT DECREASED [None]
